FAERS Safety Report 19659044 (Version 1)
Quarter: 2021Q3

REPORT INFORMATION
  Report Type: Report from Study
  Country: CZ (occurrence: CZ)
  Receive Date: 20210805
  Receipt Date: 20210805
  Transmission Date: 20211014
  Serious: Yes (Life-Threatening, Hospitalization, Other)
  Sender: FDA-Public Use
  Company Number: CZ-CELLTRION INC.-2020CZ022124

PATIENT

DRUGS (13)
  1. POLATUZUMAB VEDOTIN. [Suspect]
     Active Substance: POLATUZUMAB VEDOTIN
     Indication: DIFFUSE LARGE B-CELL LYMPHOMA REFRACTORY
     Dosage: 1.8 MG/KG, EVERY 21 DAYS
     Route: 042
     Dates: start: 20200204, end: 20200622
  2. FOLIC ACID. [Concomitant]
     Active Substance: FOLIC ACID
     Dosage: 10 MG
     Route: 048
  3. BENDAMUSTINE [Suspect]
     Active Substance: BENDAMUSTINE
     Indication: DIFFUSE LARGE B-CELL LYMPHOMA REFRACTORY
     Dosage: 90 MG/M2, EVERY 21 DAYS
     Route: 042
     Dates: start: 20200204, end: 20200622
  4. ZARZIO [Concomitant]
     Active Substance: FILGRASTIM
     Dosage: 48 MIU SC INJ 1XD AT 12:00
     Route: 058
  5. CITALOPRAM [Concomitant]
     Active Substance: CITALOPRAM HYDROBROMIDE
     Dosage: 20 MBQ
     Route: 048
  6. BISEPTOL [Concomitant]
     Active Substance: SULFAMETHOXAZOLE\TRIMETHOPRIM
     Dosage: 480 MG
     Route: 048
  7. ABELCET [Concomitant]
     Active Substance: AMPHOTERICIN B\DIMYRISTOYLPHOSPHATIDYLCHOLINE, DL-\DIMYRISTOYLPHOSPHATIDYLGLYCEROL, DL-
     Dosage: 400 MG + GLU 5%500 ML/6HR
     Dates: start: 20200309
  8. RITUXIMAB (UNKNOWN) [Suspect]
     Active Substance: RITUXIMAB
     Indication: DIFFUSE LARGE B-CELL LYMPHOMA REFRACTORY
     Dosage: 375 MG/M2, EVERY 21 DAYS
     Route: 041
     Dates: start: 20200204, end: 20200622
  9. CIPLOX [Concomitant]
     Active Substance: CIPROFLOXACIN
     Dosage: 500 MG FOR 0.5 PER DAY
     Route: 048
  10. VALACICLOVIR [Concomitant]
     Active Substance: VALACYCLOVIR HYDROCHLORIDE
     Dosage: 500 MG FOR 0.5 PER DAY
     Route: 048
  11. MERONEM [Concomitant]
     Active Substance: MEROPENEM
     Dosage: 2 G + PHYSIOLOGICAL SALINE SOLUTION 100 ML/30 MIN
  12. HELICID [Concomitant]
     Active Substance: OMEPRAZOLE
     Dosage: 20 MG
     Route: 048
  13. KALNORMIN [Concomitant]
     Active Substance: POTASSIUM CHLORIDE
     Dosage: 1 G
     Route: 048

REACTIONS (7)
  - Bronchopulmonary aspergillosis [Recovering/Resolving]
  - Thrombocytopenia [Unknown]
  - Neutropenia [Unknown]
  - Cytopenia [Unknown]
  - Neuropathy peripheral [Unknown]
  - Anaemia [Unknown]
  - Infection [Unknown]

NARRATIVE: CASE EVENT DATE: 20200303
